FAERS Safety Report 10278078 (Version 2)
Quarter: 2015Q1

REPORT INFORMATION
  Report Type: Report from Study
  Country: DE (occurrence: RU)
  Receive Date: 20140704
  Receipt Date: 20150108
  Transmission Date: 20150720
  Serious: Yes (Death)
  Sender: FDA-Public Use
  Company Number: DE-ACTELION-A-US2014-101407

PATIENT
  Age: 53 Year
  Sex: Male

DRUGS (9)
  1. SIOFOR [Concomitant]
     Active Substance: METFORMIN HYDROCHLORIDE
  2. NIMESULIDE [Concomitant]
     Active Substance: NIMESULIDE
  3. TORASEMIDE [Concomitant]
     Active Substance: TORSEMIDE
  4. WARFARIN [Concomitant]
     Active Substance: WARFARIN
  5. FUROSEMIDE. [Concomitant]
     Active Substance: FUROSEMIDE
  6. VENTAVIS [Suspect]
     Active Substance: ILOPROST
     Indication: PULMONARY HYPERTENSION
     Dosage: UNK
     Route: 055
     Dates: start: 2008
  7. MACITENTAN [Concomitant]
     Active Substance: MACITENTAN
     Indication: INVESTIGATION
     Dosage: 10 UNK, UNK
     Dates: start: 2008
  8. REVATIO [Concomitant]
     Active Substance: SILDENAFIL CITRATE
     Dosage: UNK
     Dates: start: 2008
  9. VEROSPIRON [Concomitant]
     Active Substance: SPIRONOLACTONE

REACTIONS (1)
  - Sudden death [Fatal]

NARRATIVE: CASE EVENT DATE: 20140617
